FAERS Safety Report 9870924 (Version 1)
Quarter: 2014Q1

REPORT INFORMATION
  Report Type: Spontaneous
  Country: NO (occurrence: NO)
  Receive Date: 20140205
  Receipt Date: 20140205
  Transmission Date: 20141002
  Serious: Yes (Other)
  Sender: FDA-Public Use
  Company Number: NO-PFIZER INC-2014030209

PATIENT
  Sex: Male

DRUGS (1)
  1. NEURONTIN [Suspect]
     Indication: NECK PAIN
     Dosage: THE DOSE WAS ESCALATED FROM THE FIRST DAY. ONE TABLET THE FIRST DAY, TWO TABLETS THE SECOND DAY ETC
     Dates: start: 2012

REACTIONS (5)
  - Off label use [Unknown]
  - Gingivitis [Unknown]
  - Personality change [Recovered/Resolved]
  - Anger [Recovered/Resolved]
  - Disturbance in social behaviour [Recovered/Resolved]
